FAERS Safety Report 10948557 (Version 1)
Quarter: 2015Q1

REPORT INFORMATION
  Report Type: Spontaneous
  Country: GB (occurrence: None)
  Receive Date: 20150320
  Receipt Date: 20150320
  Transmission Date: 20150721
  Serious: Yes (Hospitalization)
  Sender: FDA-Public Use
  Company Number: NSR_02005_2015

PATIENT
  Age: 41 Year
  Sex: Female

DRUGS (4)
  1. PROPRANOLOL [Suspect]
     Active Substance: PROPRANOLOL\PROPRANOLOL HYDROCHLORIDE
     Indication: PRODUCT USED FOR UNKNOWN INDICATION
  2. OLANZAPINE (OLANZAPINE) [Suspect]
     Active Substance: OLANZAPINE
     Indication: PRODUCT USED FOR UNKNOWN INDICATION
  3. QUETIAPINE (QUETIAPINE) [Suspect]
     Active Substance: QUETIAPINE
     Indication: PRODUCT USED FOR UNKNOWN INDICATION
  4. VENLAFAXINE [Suspect]
     Active Substance: VENLAFAXINE HYDROCHLORIDE
     Indication: PRODUCT USED FOR UNKNOWN INDICATION

REACTIONS (10)
  - Rhabdomyolysis [None]
  - Pneumonia aspiration [None]
  - Toxicity to various agents [None]
  - Paralysis [None]
  - Leukoencephalopathy [None]
  - Seizure [None]
  - Cerebral infarction [None]
  - Acute respiratory distress syndrome [None]
  - Neuroleptic malignant syndrome [None]
  - Intentional overdose [None]
